FAERS Safety Report 25423038 (Version 1)
Quarter: 2025Q2

REPORT INFORMATION
  Report Type: Report from Study
  Country: GB (occurrence: GB)
  Receive Date: 20250611
  Receipt Date: 20250611
  Transmission Date: 20250717
  Serious: Yes (Hospitalization, Other)
  Sender: ABBVIE
  Company Number: GB-ABBVIE-6253485

PATIENT
  Age: 78 Year
  Sex: Female
  Weight: 59.3 kg

DRUGS (1)
  1. FOSCARBIDOPA\FOSLEVODOPA [Suspect]
     Active Substance: FOSCARBIDOPA\FOSLEVODOPA
     Indication: Parkinson^s disease
     Route: 058
     Dates: start: 20250125, end: 20250129

REACTIONS (3)
  - Chest discomfort [Recovered/Resolved]
  - Myocardial ischaemia [Unknown]
  - Dyspnoea [Recovered/Resolved]
